FAERS Safety Report 9362151 (Version 5)
Quarter: 2013Q3

REPORT INFORMATION
  Report Type: Report from Study
  Country: US (occurrence: US)
  Receive Date: 20130621
  Receipt Date: 20130910
  Transmission Date: 20140515
  Serious: Yes (Hospitalization, Other)
  Sender: FDA-Public Use
  Company Number: US-009507513-1306USA007463

PATIENT
  Age: 43 Year
  Sex: Male
  Weight: 102.95 kg

DRUGS (11)
  1. BOCEPREVIR [Suspect]
     Indication: HEPATITIS C
     Dosage: 800 MG, Q8H
     Route: 048
     Dates: start: 20121129, end: 20130612
  2. PEGINTRON [Suspect]
     Indication: HEPATITIS C
     Dosage: 150 MICROGRAM, QW
     Route: 058
     Dates: start: 20121101, end: 20130606
  3. REBETOL [Suspect]
     Indication: HEPATITIS C
     Dosage: 600 MG, BID
     Route: 048
     Dates: start: 20121101, end: 20130612
  4. ISENTRESS [Concomitant]
     Indication: ANTIRETROVIRAL THERAPY
     Dosage: 400 MG, BID
     Route: 048
     Dates: start: 20120409
  5. TRUVADA [Concomitant]
     Indication: ANTIRETROVIRAL THERAPY
     Dosage: 500 MG, QD
     Route: 048
     Dates: start: 20081015
  6. ABILIFY [Concomitant]
     Indication: DEPRESSION
     Dosage: 1 TABLET, QD
     Route: 048
     Dates: start: 20120330
  7. TRAZODONE HYDROCHLORIDE [Concomitant]
     Indication: DEPRESSION
     Dosage: 50 MG, PRN
     Dates: start: 20110203
  8. AMBIEN [Concomitant]
     Indication: INSOMNIA
     Dosage: 50 MG EVERY 5 HOURS, PRN
     Route: 048
     Dates: start: 20120126
  9. VIAGRA [Concomitant]
     Indication: ERECTILE DYSFUNCTION
     Dosage: 1 TABLET, PRN
     Route: 048
     Dates: start: 20120926
  10. VICODIN [Concomitant]
     Indication: HEADACHE
     Dosage: 5/500 MG Q 6 HOURS, PRN
     Route: 048
     Dates: start: 20121129
  11. ELTROMBOPAG OLAMINE [Concomitant]
     Indication: THROMBOCYTOPENIA
     Dosage: 25 MG, QD
     Route: 048
     Dates: start: 20130522, end: 20130612

REACTIONS (4)
  - Liver disorder [Not Recovered/Not Resolved]
  - Abdominal pain [Recovered/Resolved]
  - Pyrexia [Recovered/Resolved]
  - Perinephric abscess [Recovered/Resolved]
